FAERS Safety Report 8217781-1 (Version None)
Quarter: 2012Q1

REPORT INFORMATION
  Report Type: 
  Country: None (occurrence: None)
  Receive Date: 20120319
  Receipt Date: 20120308
  Transmission Date: 20120608
  Serious: Yes (Other)
  Sender: FDA-Public Use
  Company Number: CA-JNJFOC-20120304658

PATIENT
  Sex: Male
  Weight: 64.41 kg

DRUGS (4)
  1. REMICADE [Suspect]
     Indication: CROHN'S DISEASE
     Route: 042
     Dates: start: 20080101
  2. AZATHIOPRINE [Concomitant]
     Route: 065
  3. VITAMINS NOS [Concomitant]
     Route: 065
  4. IRON [Concomitant]
     Dosage: IRON PILLS
     Route: 065

REACTIONS (1)
  - RETINAL TEAR [None]
